FAERS Safety Report 9468838 (Version 2)
Quarter: 2013Q3

REPORT INFORMATION
  Report Type: Spontaneous
  Country: US (occurrence: US)
  Receive Date: 20130821
  Receipt Date: 20130821
  Transmission Date: 20140515
  Serious: Yes (Hospitalization, Other)
  Sender: FDA-Public Use
  Company Number: US-FRI-1000046704

PATIENT
  Age: 57 Year
  Sex: Female
  Weight: 93.4 kg

DRUGS (22)
  1. VIIBRYD [Suspect]
     Indication: DEPRESSION
     Dosage: 10 MG
     Route: 048
     Dates: start: 20130108, end: 20130114
  2. VIIBRYD [Suspect]
     Dosage: 20 MG
     Route: 048
     Dates: start: 20130115, end: 20130121
  3. VIIBRYD [Suspect]
     Dosage: 40 MG
     Route: 048
     Dates: start: 20130122, end: 20130513
  4. VIIBRYD [Suspect]
     Dosage: 50 MG
     Route: 048
     Dates: start: 20130514, end: 20130520
  5. VIIBRYD [Suspect]
     Indication: DEPRESSION
     Dosage: 60 MG
     Route: 048
     Dates: start: 20130521, end: 2013
  6. VIIBRYD [Suspect]
     Dosage: 40 MG
     Route: 048
     Dates: start: 2013, end: 20130709
  7. JANTOVEN [Concomitant]
     Route: 048
  8. METOPROLOL SUCCINATE [Concomitant]
     Dosage: 50 MG
     Route: 048
  9. LISINOPRIL [Concomitant]
     Dosage: 10 MG
     Route: 048
  10. ASPIRIN [Concomitant]
     Dosage: 81 MG
     Route: 048
  11. NEURONTIN [Concomitant]
     Indication: PAIN
     Dosage: 1200 MG EVERY FOUR HOURS
     Route: 048
  12. OMEPRAZOLE [Concomitant]
     Dosage: 40 MG
     Route: 048
  13. CRESTOR [Concomitant]
     Dosage: 20 MG
     Route: 048
  14. ADVAIR [Concomitant]
     Dosage: 100 MCG/50 MCG 1 PUFF DAILY
     Route: 055
  15. NITRO-DUR [Concomitant]
     Dosage: 0.4 MG/HR 1 PATCH ON IN THE AM, OFF AT HS
     Route: 062
  16. FEXOFENADINE/PSEUDOEPHEDRINE [Concomitant]
     Dosage: 180 MG/240 MG 1 TABLET DAILY
     Route: 048
  17. HUMALOG [Concomitant]
     Dosage: VIA PUMP
  18. CLONAZEPAM [Concomitant]
  19. NITROSTAT [Concomitant]
     Indication: CHEST PAIN
     Dosage: 0.8 MG
     Route: 060
  20. PROAIR HFA [Concomitant]
  21. FENTANYL [Concomitant]
     Dosage: 100 MCG/HR 1 PATCH DAILY
     Route: 062
  22. TRAZODONE [Concomitant]
     Dosage: 200 MG AT BEDTIME
     Route: 048

REACTIONS (4)
  - Blood glucose increased [Recovered/Resolved]
  - Hallucination [Recovered/Resolved]
  - Prescribed overdose [Recovered/Resolved]
  - Weight increased [Unknown]
